FAERS Safety Report 7034733-8 (Version None)
Quarter: 2010Q4

REPORT INFORMATION
  Report Type: 
  Country: None (occurrence: None)
  Receive Date: 20101008
  Receipt Date: 20100927
  Transmission Date: 20110411
  Serious: Yes (Hospitalization, Disabling)
  Sender: FDA-Public Use
  Company Number: PHHO2010IL05616

PATIENT
  Sex: Male
  Weight: 60 kg

DRUGS (1)
  1. AFINITOR [Suspect]
     Indication: DIFFUSE LARGE B-CELL LYMPHOMA
     Dosage: CODE NOT BROKEN
     Route: 048
     Dates: start: 20091125, end: 20100412

REACTIONS (12)
  - ARTERIOSCLEROSIS [None]
  - CENTRAL NERVOUS SYSTEM LYMPHOMA [None]
  - CRANIAL NERVE PARALYSIS [None]
  - DIABETES MELLITUS [None]
  - DIABETIC NEUROPATHY [None]
  - DIPLOPIA [None]
  - DRUG INEFFECTIVE [None]
  - NAUSEA [None]
  - OPHTHALMOPLEGIA [None]
  - VISION BLURRED [None]
  - VITRECTOMY [None]
  - VOMITING [None]
